FAERS Safety Report 6026912-3 (Version None)
Quarter: 2009Q1

REPORT INFORMATION
  Report Type: 
  Country: None (occurrence: None)
  Receive Date: 20090105
  Receipt Date: 20081229
  Transmission Date: 20090719
  Serious: Yes (Hospitalization)
  Sender: FDA-Public Use
  Company Number: US-BIOGENIDEC-2008BI035112

PATIENT
  Age: 57 Year
  Sex: Female

DRUGS (3)
  1. AVONEX [Suspect]
     Indication: MULTIPLE SCLEROSIS
     Route: 030
     Dates: start: 20031001, end: 20041001
  2. AVONEX [Suspect]
     Route: 030
     Dates: start: 20060101, end: 20070601
  3. AVONEX [Suspect]
     Route: 030
     Dates: start: 20080422

REACTIONS (1)
  - PARALYSIS [None]
